FAERS Safety Report 4412073-0 (Version None)
Quarter: 2004Q2

REPORT INFORMATION
  Report Type: 
  Country: None (occurrence: None)
  Receive Date: 20040630
  Receipt Date: 20040513
  Transmission Date: 20050107
  Serious: No
  Sender: FDA-Public Use
  Company Number: 04P-163-0254363-00

PATIENT
  Age: 59 Year
  Sex: Female
  Weight: 66.2252 kg

DRUGS (10)
  1. HUMIRA [Suspect]
     Indication: RHEUMATOID ARTHRITIS
     Dosage: 40 MG, 1 IN 2 WK, SUBCUTANEOUS
     Route: 058
     Dates: start: 20030501, end: 20031201
  2. METHOTREXATE [Concomitant]
  3. HYDROXYCHLOROQUINE PHOSPHATE [Concomitant]
  4. METOPROLOL SUCCINATE [Concomitant]
  5. ESTROPIPATE [Concomitant]
  6. FOLIC ACID [Concomitant]
  7. CALCIUM [Concomitant]
  8. MULTI-VITAMINS [Concomitant]
  9. TOCOPHEROL CONCENTRATE CAP [Concomitant]
  10. ACETAMINOPHEN [Concomitant]

REACTIONS (6)
  - FEELING ABNORMAL [None]
  - HOARSENESS [None]
  - NASOPHARYNGITIS [None]
  - PAIN IN EXTREMITY [None]
  - PHARYNGOLARYNGEAL PAIN [None]
  - SURGERY [None]
